FAERS Safety Report 8258183-1 (Version None)
Quarter: 2012Q2

REPORT INFORMATION
  Report Type: 
  Country: None (occurrence: None)
  Receive Date: 20120404
  Receipt Date: 20120327
  Transmission Date: 20120825
  Serious: Yes (Other)
  Sender: FDA-Public Use
  Company Number: PHEH2012US005167

PATIENT
  Sex: Male

DRUGS (11)
  1. GABAPENTIN [Concomitant]
     Dosage: 100 MG, UNK
  2. FUROSEMIDE [Concomitant]
     Dosage: 20 MG, UNK
  3. NEUPOGEN [Concomitant]
     Dosage: 300 UG
  4. EPZICOM [Concomitant]
  5. VIREAD [Concomitant]
     Dosage: 150 MG, UNK
  6. ANTIVIRALS [Concomitant]
  7. GLEEVEC [Suspect]
     Dosage: 2 TABLETS BY MOUTH DAILY WITH FOOD AND LARGE GLASS OF WATER
  8. ZOLPIDEM [Concomitant]
     Dosage: 5 MG, UNK
  9. TRIMETHOPRIM [Concomitant]
     Dosage: 200-40/5
  10. IBUPROFEN [Concomitant]
     Dosage: 200 MG, UNK
  11. MILK THISTLE [Concomitant]

REACTIONS (11)
  - LIVER INJURY [None]
  - MUSCLE SPASMS [None]
  - PERIORBITAL OEDEMA [None]
  - FLUID RETENTION [None]
  - HEPATIC LESION [None]
  - WHITE BLOOD CELL COUNT DECREASED [None]
  - PAIN IN EXTREMITY [None]
  - SWELLING [None]
  - MICTURITION DISORDER [None]
  - URINARY INCONTINENCE [None]
  - FATIGUE [None]
